FAERS Safety Report 21566693 (Version 2)
Quarter: 2023Q4

REPORT INFORMATION
  Report Type: Report from Study
  Country: US (occurrence: US)
  Receive Date: 20221108
  Receipt Date: 20231123
  Transmission Date: 20240109
  Serious: Yes (Other)
  Sender: FDA-Public Use
  Company Number: US-TAKEDA-2017BLT004696

PATIENT
  Sex: Female

DRUGS (2)
  1. HUMAN IMMUNOGLOBULIN G\HYALURONIDASE RECOMBINANT HUMAN [Suspect]
     Active Substance: HUMAN IMMUNOGLOBULIN G\HYALURONIDASE (HUMAN RECOMBINANT)
     Indication: Primary immunodeficiency syndrome
     Dosage: 30 GRAM
     Route: 065
  2. HUMAN IMMUNOGLOBULIN G\HYALURONIDASE RECOMBINANT HUMAN [Suspect]
     Active Substance: HUMAN IMMUNOGLOBULIN G\HYALURONIDASE (HUMAN RECOMBINANT)
     Indication: Selective IgG subclass deficiency

REACTIONS (13)
  - Pneumonia [Recovering/Resolving]
  - Bronchitis [Not Recovered/Not Resolved]
  - Infusion related reaction [Unknown]
  - Illness [Unknown]
  - Pain [Unknown]
  - Sinusitis [Unknown]
  - Tendonitis [Not Recovered/Not Resolved]
  - Immunoglobulins decreased [Unknown]
  - Asthma [Unknown]
  - Abdominal pain [Unknown]
  - Pyrexia [Unknown]
  - Infusion site pruritus [Unknown]
  - Inappropriate schedule of product administration [Unknown]
